FAERS Safety Report 9678670 (Version 2)
Quarter: 2013Q4

REPORT INFORMATION
  Report Type: Spontaneous
  Country: DE (occurrence: DE)
  Receive Date: 20131108
  Receipt Date: 20131121
  Transmission Date: 20140711
  Serious: Yes (Hospitalization, Disabling, Other)
  Sender: FDA-Public Use
  Company Number: DE-TEVA-441764GER

PATIENT
  Age: 43 Year
  Sex: Male

DRUGS (1)
  1. DIAZEPAM [Suspect]
     Indication: SUICIDE ATTEMPT
     Route: 065

REACTIONS (10)
  - Overdose [Recovering/Resolving]
  - Suicide attempt [Recovering/Resolving]
  - Toxicity to various agents [Recovering/Resolving]
  - Respiratory depression [Unknown]
  - Hypotonia [Unknown]
  - Hypotension [Unknown]
  - Hypoxic-ischaemic encephalopathy [Unknown]
  - Parkinsonism [Unknown]
  - Central nervous system necrosis [Unknown]
  - Muscle spasticity [Unknown]
